FAERS Safety Report 17099096 (Version 2)
Quarter: 2019Q4

REPORT INFORMATION
  Report Type: Spontaneous
  Country: US (occurrence: US)
  Receive Date: 20191202
  Receipt Date: 20191212
  Transmission Date: 20200122
  Serious: No
  Sender: FDA-Public Use
  Company Number: US-GILEAD-2019-0439976

PATIENT
  Sex: Female

DRUGS (26)
  1. METFORMIN [Concomitant]
     Active Substance: METFORMIN HYDROCHLORIDE
  2. SPIRONOLACTONE. [Concomitant]
     Active Substance: SPIRONOLACTONE
  3. OXYBUTYNIN CHLORIDE. [Concomitant]
     Active Substance: OXYBUTYNIN CHLORIDE
  4. GABAPENTIN. [Concomitant]
     Active Substance: GABAPENTIN
  5. ONDANSETRON [Concomitant]
     Active Substance: ONDANSETRON
  6. XIFAXAN [Concomitant]
     Active Substance: RIFAXIMIN
  7. CETIRIZINE [Concomitant]
     Active Substance: CETIRIZINE HYDROCHLORIDE
  8. ALPRAZOLAM. [Concomitant]
     Active Substance: ALPRAZOLAM
  9. TIZANIDINE. [Concomitant]
     Active Substance: TIZANIDINE
  10. EPCLUSA [Suspect]
     Active Substance: SOFOSBUVIR\VELPATASVIR
     Indication: CHRONIC HEPATITIS C
     Dosage: 1 DOSAGE FORM, QD
     Route: 048
     Dates: start: 20191113
  11. SIMVASTATIN. [Concomitant]
     Active Substance: SIMVASTATIN
  12. HUMALOG [Concomitant]
     Active Substance: INSULIN LISPRO
  13. LEVEMIR [Concomitant]
     Active Substance: INSULIN DETEMIR
  14. AMLODIPINE BESILATE [Concomitant]
     Active Substance: AMLODIPINE BESYLATE
  15. PROPRANOLOL HYDROCHLORIDE. [Concomitant]
     Active Substance: PROPRANOLOL HYDROCHLORIDE
  16. FLUTICASONE PROPIONATE. [Concomitant]
     Active Substance: FLUTICASONE PROPIONATE
  17. RIBAVIRIN. [Concomitant]
     Active Substance: RIBAVIRIN
  18. PROAIR HFA [Concomitant]
     Active Substance: ALBUTEROL SULFATE
  19. FERROUS SULFATE. [Concomitant]
     Active Substance: FERROUS SULFATE
  20. LACTULOSE. [Concomitant]
     Active Substance: LACTULOSE
  21. OXYCODONE HYDROCHLORIDE. [Concomitant]
     Active Substance: OXYCODONE HYDROCHLORIDE
  22. PIOGLITAZONE. [Concomitant]
     Active Substance: PIOGLITAZONE
  23. ASPIRIN ACTAVIS [Concomitant]
  24. ONGLYZA [Concomitant]
     Active Substance: SAXAGLIPTIN HYDROCHLORIDE
  25. VICTOZA [Concomitant]
     Active Substance: LIRAGLUTIDE
  26. MAGNESIUM [Concomitant]
     Active Substance: MAGNESIUM

REACTIONS (6)
  - Rash [Not Recovered/Not Resolved]
  - Nausea [Recovered/Resolved]
  - Fungal infection [Not Recovered/Not Resolved]
  - Dyspepsia [Not Recovered/Not Resolved]
  - Viral infection [Recovered/Resolved]
  - Headache [Unknown]
